FAERS Safety Report 9317203 (Version 1)
Quarter: 2013Q2

REPORT INFORMATION
  Report Type: Spontaneous
  Country: US (occurrence: None)
  Receive Date: 20130528
  Receipt Date: 20130528
  Transmission Date: 20140414
  Serious: No
  Sender: FDA-Public Use
  Company Number: None

PATIENT
  Sex: 0

DRUGS (1)
  1. JANUVIA [Suspect]
     Indication: TYPE 2 DIABETES MELLITUS
     Dosage: 25MG, 50MG, 100MG; 1 A DAY
     Dates: start: 2006, end: 2012

REACTIONS (4)
  - Pancreatitis [None]
  - Diverticulitis [None]
  - Thyroid cyst [None]
  - Pancreatic carcinoma [None]
